FAERS Safety Report 6144042-7 (Version None)
Quarter: 2009Q2

REPORT INFORMATION
  Report Type: 
  Country: None (occurrence: None)
  Receive Date: 20090401
  Receipt Date: 20090323
  Transmission Date: 20091009
  Serious: Yes (Death)
  Sender: FDA-Public Use
  Company Number: 2009-193723-NL

PATIENT
  Age: 90 Year
  Sex: Female

DRUGS (4)
  1. MIRTAZAPINE [Suspect]
     Indication: DEMENTIA
     Dosage: DF, ORAL
     Route: 048
     Dates: end: 20081208
  2. NOLOTIL [Suspect]
     Indication: CHEST PAIN
     Dosage: 575 MG PRN
     Dates: start: 20060101, end: 20081208
  3. TRIFLUSAL [Suspect]
     Indication: ISCHAEMIA
     Dosage: 300 MG
     Dates: start: 20060101, end: 20081208
  4. TICLOPIDINE HCL [Suspect]
     Indication: ISCHAEMIA
     Dosage: 250 MG
     Dates: start: 20060101, end: 20081208

REACTIONS (2)
  - BONE MARROW FAILURE [None]
  - UROSEPSIS [None]
